FAERS Safety Report 15491086 (Version 1)
Quarter: 2018Q4

REPORT INFORMATION
  Report Type: Spontaneous
  Country: NL (occurrence: NL)
  Receive Date: 20181012
  Receipt Date: 20181012
  Transmission Date: 20190205
  Serious: Yes (Hospitalization)
  Sender: FDA-Public Use
  Company Number: NL-TEVA-2018-NL-956062

PATIENT
  Age: 3 Year
  Sex: Male

DRUGS (1)
  1. SALBUTAMOL CFK-VRIJE INHALATOR TEVA 100 MICROGRAM/DOSIS [Suspect]
     Active Substance: ALBUTEROL
     Indication: PRODUCT USED FOR UNKNOWN INDICATION
     Dosage: AEROSOL, SUSPENSION - IF NECESSARY

REACTIONS (2)
  - Chest discomfort [Unknown]
  - Device malfunction [Unknown]

NARRATIVE: CASE EVENT DATE: 20180913
